FAERS Safety Report 4553574-4 (Version None)
Quarter: 2004Q4

REPORT INFORMATION
  Report Type: 
  Country: None (occurrence: None)
  Receive Date: 20041227
  Receipt Date: 20040927
  Transmission Date: 20050328
  Serious: No
  Sender: FDA-Public Use
  Company Number: 04P-163-0274836-00

PATIENT
  Age: 67 Year
  Sex: Male

DRUGS (13)
  1. HUMIRA [Suspect]
     Indication: RHEUMATOID ARTHRITIS
     Dosage: 40 MG, 1 IN 2 WK, SUBCUTANEOUS
     Route: 058
     Dates: start: 20030701, end: 20040901
  2. LANSOPRAZOLE [Concomitant]
  3. ZOCOR [Concomitant]
  4. CELECOXIB [Concomitant]
  5. TIMILAL [Concomitant]
  6. PROVALENE [Concomitant]
  7. ASPIRIN [Concomitant]
  8. RALOXIFENE HCL [Concomitant]
  9. MULTI-VITAMINS [Concomitant]
  10. CALCIUM GLUCONATE [Concomitant]
  11. TOCOPHEROL CONCENTRATE CAP [Concomitant]
  12. ASCORBIC ACID [Concomitant]
  13. LYSINE [Concomitant]

REACTIONS (1)
  - RASH [None]
